FAERS Safety Report 9098312 (Version 1)
Quarter: 2013Q1

REPORT INFORMATION
  Report Type: Spontaneous
  Country: US (occurrence: US)
  Receive Date: 20130213
  Receipt Date: 20130213
  Transmission Date: 20140127
  Serious: Yes (Other)
  Sender: FDA-Public Use
  Company Number: PHEH2013US003540

PATIENT
  Sex: Female

DRUGS (4)
  1. EXJADE [Suspect]
     Indication: IRON OVERLOAD
     Dosage: UNK
     Dates: start: 2006
  2. ARICEPT [Suspect]
  3. METOPROLOL [Concomitant]
  4. SYNTHROID [Concomitant]

REACTIONS (4)
  - Fracture [Unknown]
  - Ankle fracture [Unknown]
  - Dementia Alzheimer^s type [Unknown]
  - Malaise [Unknown]
